FAERS Safety Report 9011507 (Version 1)
Quarter: 2013Q1

REPORT INFORMATION
  Report Type: Spontaneous
  Country: US (occurrence: US)
  Receive Date: 20130108
  Receipt Date: 20130108
  Transmission Date: 20140127
  Serious: Yes (Death)
  Sender: FDA-Public Use
  Company Number: PHEH2013US000613

PATIENT
  Sex: Male
  Weight: 56 kg

DRUGS (1)
  1. EXJADE [Suspect]
     Indication: SICKLE CELL ANAEMIA
     Dosage: 625 MG, QD
     Route: 048
     Dates: start: 20120525

REACTIONS (2)
  - Sickle cell anaemia [Fatal]
  - Pulmonary arterial hypertension [Fatal]
